FAERS Safety Report 9037385 (Version 1)
Quarter: 2013Q1

REPORT INFORMATION
  Report Type: Spontaneous
  Country: US (occurrence: None)
  Receive Date: 20130115
  Receipt Date: 20130115
  Transmission Date: 20140127
  Serious: Yes (Other)
  Sender: FDA-Public Use
  Company Number: 2013P1000027

PATIENT
  Sex: 0

DRUGS (1)
  1. MIDAZOLAM HCL INJECTION USP 2 MG/2 ML VIAL [Suspect]
     Indication: CONVULSION
     Dates: start: 201210

REACTIONS (2)
  - Convulsion [None]
  - No therapeutic response [None]
